FAERS Safety Report 7767336-8 (Version None)
Quarter: 2011Q3

REPORT INFORMATION
  Report Type: 
  Country: None (occurrence: None)
  Receive Date: 20110922
  Receipt Date: 20110912
  Transmission Date: 20111222
  Serious: Yes (Other)
  Sender: FDA-Public Use
  Company Number: US-JNJFOC-20110905582

PATIENT
  Sex: Male
  Weight: 82.1 kg

DRUGS (4)
  1. EYE DROPS [Concomitant]
     Indication: GLAUCOMA
     Route: 047
  2. HYTRIN [Concomitant]
     Indication: ARRHYTHMIA
     Route: 048
  3. ZYTIGA [Suspect]
     Indication: PROSTATE CANCER
     Dosage: 4 TABLETS A DAY - TOTAL 1000 MG DAILY
     Route: 048
     Dates: start: 20110722, end: 20110819
  4. RESTASIS [Concomitant]
     Indication: DRY EYE
     Route: 047

REACTIONS (4)
  - HYPOTENSION [None]
  - NONSPECIFIC REACTION [None]
  - UNEVALUABLE EVENT [None]
  - DYSPNOEA [None]
